FAERS Safety Report 4774324-2 (Version None)
Quarter: 2005Q3

REPORT INFORMATION
  Report Type: 
  Country: None (occurrence: None)
  Receive Date: 20050914
  Receipt Date: 20050303
  Transmission Date: 20060218
  Serious: Yes (Hospitalization)
  Sender: FDA-Public Use
  Company Number: 163-20785-05030090

PATIENT
  Age: 72 Year
  Sex: Male

DRUGS (4)
  1. THALOMID [Suspect]
     Indication: PROSTATE CANCER METASTATIC
     Dosage: 200 MG, QHS, ORAL; 100 MG, QHS, ORAL
     Route: 048
     Dates: start: 20050208, end: 20050301
  2. THALOMID [Suspect]
     Indication: PROSTATE CANCER METASTATIC
     Dosage: 200 MG, QHS, ORAL; 100 MG, QHS, ORAL
     Route: 048
     Dates: start: 20050302, end: 20050301
  3. TAXOTERE [Concomitant]
  4. ARANESP [Concomitant]

REACTIONS (1)
  - DEEP VEIN THROMBOSIS [None]
